FAERS Safety Report 5352402-7 (Version None)
Quarter: 2007Q2

REPORT INFORMATION
  Report Type: 
  Country: None (occurrence: None)
  Receive Date: 20070611
  Receipt Date: 20070531
  Transmission Date: 20071010
  Serious: No
  Sender: FDA-Public Use
  Company Number: US-ASTRAZENECA-2006UW10172

PATIENT
  Age: 126 Month
  Sex: Female
  Weight: 50 kg

DRUGS (4)
  1. SEROQUEL [Suspect]
     Indication: AFFECTIVE DISORDER
     Dosage: 25 MG- 200 MG
     Route: 048
     Dates: start: 20040330, end: 20060417
  2. RISPERDAL [Concomitant]
  3. TOPAMAX [Concomitant]
  4. PROZAC [Concomitant]

REACTIONS (1)
  - DIABETES MELLITUS [None]
